FAERS Safety Report 16621416 (Version 1)
Quarter: 2019Q3

REPORT INFORMATION
  Report Type: Spontaneous
  Country: US (occurrence: US)
  Receive Date: 20190611
  Receipt Date: 20190611
  Transmission Date: 20191004
  Serious: No
  Sender: FDA-Public Use
  Company Number: None

PATIENT
  Age: 45 Year
  Sex: Female

DRUGS (1)
  1. MYCOPHENOLATE MOFETIL 500MG TABLET [Suspect]
     Active Substance: MYCOPHENOLATE MOFETIL
     Dates: start: 201809

REACTIONS (4)
  - Incorrect dose administered [None]
  - Insurance issue [None]
  - Wrong technique in product usage process [None]
  - Intentional product use issue [None]

NARRATIVE: CASE EVENT DATE: 20190611
